FAERS Safety Report 8304927-X (Version None)
Quarter: 2012Q2

REPORT INFORMATION
  Report Type: 
  Country: None (occurrence: None)
  Receive Date: 20120423
  Receipt Date: 20120412
  Transmission Date: 20120825
  Serious: Yes (Hospitalization)
  Sender: FDA-Public Use
  Company Number: FR-ROCHE-1059136

PATIENT
  Age: 66 Year
  Sex: Female

DRUGS (8)
  1. LANTUS [Concomitant]
  2. PREDNISOLONE [Concomitant]
  3. ISRADIPINE [Concomitant]
  4. BACTRIM DS [Concomitant]
  5. NOVORAPID [Concomitant]
  6. MYCOPHENOLATE MOFETIL (CELLCEPT) [Suspect]
     Indication: PRODUCT USED FOR UNKNOWN INDICATION
     Route: 048
     Dates: end: 20120220
  7. NEORAL [Suspect]
     Indication: PRODUCT USED FOR UNKNOWN INDICATION
     Route: 065
     Dates: end: 20120220
  8. NEXIUM [Concomitant]

REACTIONS (1)
  - ENTEROCOLITIS HAEMORRHAGIC [None]
